FAERS Safety Report 6192349-X (Version None)
Quarter: 2009Q2

REPORT INFORMATION
  Report Type: 
  Country: None (occurrence: None)
  Receive Date: 20090518
  Receipt Date: 20090504
  Transmission Date: 20091009
  Serious: Yes (Hospitalization, Other)
  Sender: FDA-Public Use
  Company Number: US-JNJFOC-20090105702

PATIENT
  Sex: Female

DRUGS (6)
  1. REMICADE [Suspect]
     Route: 042
  2. REMICADE [Suspect]
     Route: 042
  3. REMICADE [Suspect]
     Indication: RHEUMATOID ARTHRITIS
     Route: 042
  4. METHOTREXATE [Concomitant]
  5. PREDNISONE [Concomitant]
  6. COZAAR [Concomitant]

REACTIONS (18)
  - ASTHENIA [None]
  - BALANCE DISORDER [None]
  - BRAIN SCAN ABNORMAL [None]
  - CENTRAL NERVOUS SYSTEM LESION [None]
  - CONVULSION [None]
  - CSF TEST ABNORMAL [None]
  - HEARING IMPAIRED [None]
  - IIIRD NERVE PARALYSIS [None]
  - INFUSION RELATED REACTION [None]
  - LOSS OF CONSCIOUSNESS [None]
  - SYNCOPE [None]
  - THROAT TIGHTNESS [None]
  - TINNITUS [None]
  - URTICARIA [None]
  - VERTIGO [None]
  - VESTIBULAR DISORDER [None]
  - VISION BLURRED [None]
  - WEIGHT DECREASED [None]
